FAERS Safety Report 24534556 (Version 4)
Quarter: 2025Q1

REPORT INFORMATION
  Report Type: Spontaneous
  Country: US (occurrence: US)
  Receive Date: 20241022
  Receipt Date: 20250317
  Transmission Date: 20250409
  Serious: Yes (Other)
  Sender: MERZ
  Company Number: US-Merz Pharmaceuticals GmbH-2024100000041

PATIENT

DRUGS (1)
  1. XEOMIN [Suspect]
     Active Substance: INCOBOTULINUMTOXINA
     Indication: Skin wrinkling
     Dosage: 12 INTERNATIONAL UNIT
     Dates: start: 20240709, end: 20240709

REACTIONS (21)
  - Botulism [Not Recovered/Not Resolved]
  - Brain fog [Recovering/Resolving]
  - Ocular hyperaemia [Recovered/Resolved]
  - Eye discharge [Unknown]
  - Anxiety [Unknown]
  - Panic attack [Recovered/Resolved]
  - Weight decreased [Unknown]
  - Insomnia [Not Recovered/Not Resolved]
  - Ear discomfort [Recovered/Resolved]
  - Ear pain [Unknown]
  - Bedridden [Unknown]
  - Disturbance in attention [Recovering/Resolving]
  - Impaired driving ability [Recovering/Resolving]
  - Sensation of foreign body [Unknown]
  - Gastrooesophageal reflux disease [Unknown]
  - Stress [Unknown]
  - Nerve injury [Recovered/Resolved]
  - Head discomfort [Unknown]
  - Headache [Recovering/Resolving]
  - Alopecia [Not Recovered/Not Resolved]
  - Fatigue [Unknown]

NARRATIVE: CASE EVENT DATE: 20240101
